FAERS Safety Report 14111457 (Version 1)
Quarter: 2017Q4

REPORT INFORMATION
  Report Type: Spontaneous
  Country: PT (occurrence: PT)
  Receive Date: 20171020
  Receipt Date: 20171020
  Transmission Date: 20180321
  Serious: Yes (Hospitalization, Other)
  Sender: FDA-Public Use
  Company Number: PT-TEVA-817456ROM

PATIENT
  Age: 49 Year
  Sex: Male
  Weight: 62 kg

DRUGS (7)
  1. FLUOROURACILO [Concomitant]
     Active Substance: FLUOROURACIL
     Indication: GASTRIC CANCER STAGE 0
     Route: 042
  2. DOCETAXEL AUROVITAS [Suspect]
     Active Substance: DOCETAXEL
     Indication: GASTRIC CANCER STAGE 0
     Route: 040
     Dates: start: 20170810
  3. OXALIPLATINA ACCORD [Suspect]
     Active Substance: OXALIPLATIN
     Indication: GASTRIC CANCER STAGE 0
     Route: 040
     Dates: start: 20170810
  4. ACETYLSALICYLIC ACID [Concomitant]
     Active Substance: ASPIRIN
     Indication: PRODUCT USED FOR UNKNOWN INDICATION
     Dosage: 1 DOSAGE FORMS DAILY;
     Route: 048
  5. CRESTOR [Concomitant]
     Active Substance: ROSUVASTATIN CALCIUM
     Dosage: 1 DOSAGE FORMS DAILY;
     Route: 048
  6. FOLINATO DE CALCIO [Concomitant]
     Indication: GASTRIC CANCER STAGE 0
     Route: 042
  7. PANTOPRAZOL [Concomitant]
     Active Substance: PANTOPRAZOLE SODIUM
     Indication: PRODUCT USED FOR UNKNOWN INDICATION
     Dosage: 1 DOSAGE FORMS DAILY;
     Route: 048

REACTIONS (6)
  - Neck pain [Recovered/Resolved]
  - Laryngeal discomfort [Recovered/Resolved]
  - Tongue disorder [Recovered/Resolved]
  - Device dislocation [Recovered/Resolved]
  - Dysarthria [Recovered/Resolved]
  - Neuropathy peripheral [Recovered/Resolved]

NARRATIVE: CASE EVENT DATE: 20170921
